FAERS Safety Report 7743098-5 (Version None)
Quarter: 2011Q3

REPORT INFORMATION
  Report Type: 
  Country: None (occurrence: None)
  Receive Date: 20110912
  Receipt Date: 20110906
  Transmission Date: 20111222
  Serious: Yes (Death, Hospitalization, Disabling)
  Sender: FDA-Public Use
  Company Number: FR-CELGENEUS-056-21880-11031650

PATIENT
  Sex: Male

DRUGS (2)
  1. REVLIMID [Suspect]
     Route: 048
     Dates: start: 20081001, end: 20110301
  2. DEXAMETHASONE [Concomitant]
     Route: 065
     Dates: start: 20081001

REACTIONS (1)
  - ACUTE MYELOID LEUKAEMIA [None]
